FAERS Safety Report 4598513-5 (Version None)
Quarter: 2005Q1

REPORT INFORMATION
  Report Type: 
  Country: None (occurrence: None)
  Receive Date: 20050304
  Receipt Date: 20041115
  Transmission Date: 20050727
  Serious: Yes (Hospitalization)
  Sender: FDA-Public Use
  Company Number: US-GLAXOSMITHKLINE-A0533849A

PATIENT
  Age: 54 Year
  Sex: Male
  Weight: 75 kg

DRUGS (5)
  1. NICODERM CQ [Suspect]
     Route: 062
     Dates: start: 20041105
  2. NICORETTE [Suspect]
     Route: 002
     Dates: start: 20041107, end: 20041108
  3. HYTRIN [Concomitant]
     Route: 048
  4. EFFEXOR [Concomitant]
     Indication: DEPRESSION
     Route: 048
  5. PREVACID [Concomitant]
     Route: 048

REACTIONS (9)
  - CHRONIC OBSTRUCTIVE PULMONARY DISEASE [None]
  - DIAPHRAGMALGIA [None]
  - DYSPNOEA [None]
  - INCREASED APPETITE [None]
  - NICOTINE DEPENDENCE [None]
  - PRODUCTIVE COUGH [None]
  - THROAT IRRITATION [None]
  - TREMOR [None]
  - WHEEZING [None]
